FAERS Safety Report 5196423-6 (Version None)
Quarter: 2006Q4

REPORT INFORMATION
  Report Type: 
  Country: None (occurrence: None)
  Receive Date: 20061226
  Receipt Date: 20061214
  Transmission Date: 20070319
  Serious: Yes (Disabling)
  Sender: FDA-Public Use
  Company Number: NASBE-06-0703

PATIENT
  Age: 64 Year
  Sex: Male

DRUGS (1)
  1. NAROPIN [Suspect]
     Indication: INGUINAL HERNIA
     Dosage: ONCE, EPIDURAL
     Route: 008
     Dates: start: 20050104, end: 20050104

REACTIONS (3)
  - ANAESTHETIC COMPLICATION [None]
  - MOTOR DYSFUNCTION [None]
  - SENSORY DISTURBANCE [None]
